FAERS Safety Report 15812220 (Version 1)
Quarter: 2019Q1

REPORT INFORMATION
  Report Type: Spontaneous
  Country: AU (occurrence: AU)
  Receive Date: 20190111
  Receipt Date: 20190111
  Transmission Date: 20190417
  Serious: Yes (Other)
  Sender: FDA-Public Use
  Company Number: AU-TEVA-2019-AU-997141

PATIENT
  Age: 26 Year
  Sex: Male

DRUGS (10)
  1. ZUCLOPENTHIXOL ACETATE [Suspect]
     Active Substance: ZUCLOPENTHIXOL ACETATE
     Route: 065
  2. TEVARIPIPRAZOLE [Suspect]
     Active Substance: ARIPIPRAZOLE
     Dosage: DOSAGE UNKNOWN
     Route: 065
  3. DIAZEPAM. [Concomitant]
     Active Substance: DIAZEPAM
  4. QUETIAPINE XR [Suspect]
     Active Substance: QUETIAPINE
     Route: 065
  5. SODIUM VALPROATE [Concomitant]
     Active Substance: VALPROATE SODIUM
  6. BENZTROPINE MESYLATE. [Concomitant]
     Active Substance: BENZTROPINE MESYLATE
  7. OLANZAPINE. [Suspect]
     Active Substance: OLANZAPINE
     Route: 065
  8. LORAZEPAM. [Concomitant]
     Active Substance: LORAZEPAM
  9. TEMAZEPAM. [Concomitant]
     Active Substance: TEMAZEPAM
  10. ATENOLOL. [Concomitant]
     Active Substance: ATENOLOL

REACTIONS (5)
  - Hypothermia [Unknown]
  - Hyperreflexia [Unknown]
  - Coma scale abnormal [Unknown]
  - Hypotension [Unknown]
  - Muscle rigidity [Unknown]
